FAERS Safety Report 7569286-9 (Version None)
Quarter: 2011Q2

REPORT INFORMATION
  Report Type: 
  Country: None (occurrence: None)
  Receive Date: 20110623
  Receipt Date: 20110614
  Transmission Date: 20111010
  Serious: Yes (Hospitalization)
  Sender: FDA-Public Use
  Company Number: BR-ASTRAZENECA-2010SE57986

PATIENT
  Age: 67 Year
  Sex: Male
  Weight: 70 kg

DRUGS (4)
  1. SEROQUEL XR [Suspect]
     Indication: INSOMNIA
     Route: 048
  2. SEROQUEL XR [Suspect]
     Indication: NERVOUSNESS
     Route: 048
  3. ASPIRIN [Concomitant]
     Indication: ANTICOAGULANT THERAPY
     Dosage: DAILY
     Route: 048
     Dates: start: 19900101
  4. CRESTOR [Suspect]
     Indication: HYPERCHOLESTEROLAEMIA
     Route: 048
     Dates: start: 20070101

REACTIONS (5)
  - FATIGUE [None]
  - NERVOUSNESS [None]
  - INSOMNIA [None]
  - OFF LABEL USE [None]
  - CHEST PAIN [None]
